FAERS Safety Report 19716543 (Version 1)
Quarter: 2021Q3

REPORT INFORMATION
  Report Type: Spontaneous
  Country: GB (occurrence: GB)
  Receive Date: 20210818
  Receipt Date: 20210818
  Transmission Date: 20211014
  Serious: Yes (Other)
  Sender: FDA-Public Use
  Company Number: GB-BEH-2021134887

PATIENT
  Sex: Male

DRUGS (1)
  1. HUMAN FIBRINOGEN FACTOR I (INN) [Suspect]
     Active Substance: FIBRINOGEN HUMAN
     Indication: PRODUCT USED FOR UNKNOWN INDICATION
     Route: 064

REACTIONS (3)
  - Floppy infant [Unknown]
  - Foetal exposure during pregnancy [Unknown]
  - Premature baby [Unknown]
